FAERS Safety Report 9314055 (Version 1)
Quarter: 2013Q2

REPORT INFORMATION
  Report Type: Spontaneous
  Country: US (occurrence: None)
  Receive Date: 20130524
  Receipt Date: 20130524
  Transmission Date: 20140414
  Serious: No
  Sender: FDA-Public Use
  Company Number: None

PATIENT
  Sex: 0
  Weight: 113.4 kg

DRUGS (2)
  1. NEUPOGEN [Suspect]
     Indication: HAEMATOPOIETIC STEM CELL MOBILISATION
     Dates: start: 20130328, end: 20130401
  2. NEUPOGEN [Suspect]
     Dates: start: 20130328, end: 20130401

REACTIONS (1)
  - Eye disorder [None]
